FAERS Safety Report 4778945-2 (Version None)
Quarter: 2005Q3

REPORT INFORMATION
  Report Type: 
  Country: None (occurrence: None)
  Receive Date: 20050914
  Receipt Date: 20050601
  Transmission Date: 20060218
  Serious: No
  Sender: FDA-Public Use
  Company Number: IND-AE-05-SAN-028

PATIENT
  Age: 66 Year
  Sex: Female
  Weight: 68.9467 kg

DRUGS (3)
  1. SANCTURA [Suspect]
     Indication: BLADDER SPASM
     Dosage: 20MG - BID - ORAL
     Route: 048
     Dates: start: 20050428, end: 20050525
  2. LIPITOR [Concomitant]
  3. SYNTHROID [Concomitant]

REACTIONS (3)
  - ABDOMINAL PAIN [None]
  - FLATULENCE [None]
  - HAEMORRHAGE URINARY TRACT [None]
